FAERS Safety Report 18494823 (Version 2)
Quarter: 2025Q3

REPORT INFORMATION
  Report Type: Spontaneous
  Country: EU (occurrence: EU)
  Receive Date: 20201112
  Receipt Date: 20250731
  Transmission Date: 20251021
  Serious: Yes (Hospitalization, Other)
  Sender: AUROBINDO
  Company Number: EU-GEN-2020-1259

PATIENT
  Age: 30 Year
  Sex: Male

DRUGS (21)
  1. AMISULPRIDE [Suspect]
     Active Substance: AMISULPRIDE
     Indication: Schizophrenia
     Route: 065
  2. ARIPIPRAZOLE [Suspect]
     Active Substance: ARIPIPRAZOLE
     Indication: Schizophrenia
     Dosage: 30 MILLIGRAM, ONCE A DAY
     Route: 065
  3. ARIPIPRAZOLE [Suspect]
     Active Substance: ARIPIPRAZOLE
     Dosage: 15 MILLIGRAM, ONCE A DAY
     Route: 065
  4. ESCITALOPRAM [Suspect]
     Active Substance: ESCITALOPRAM OXALATE
     Indication: Schizophrenia
     Route: 065
  5. ESCITALOPRAM [Suspect]
     Active Substance: ESCITALOPRAM OXALATE
     Dosage: 10 MILLIGRAM, ONCE A DAY
     Route: 065
  6. OLANZAPINE [Suspect]
     Active Substance: OLANZAPINE
     Indication: Schizophrenia
     Dosage: 20 MILLIGRAM, ONCE A DAY  FOR 2 WEEKS
     Route: 065
  7. OLANZAPINE [Suspect]
     Active Substance: OLANZAPINE
     Dosage: 10 MILLIGRAM, ONCE A DAY
     Route: 065
  8. PROPRANOLOL [Suspect]
     Active Substance: PROPRANOLOL HYDROCHLORIDE
     Indication: Schizophrenia
     Dosage: 30 MILLIGRAM, ONCE A DAY
     Route: 065
  9. QUETIAPINE [Suspect]
     Active Substance: QUETIAPINE
     Indication: Schizophrenia
     Route: 065
  10. SERTRALINE [Suspect]
     Active Substance: SERTRALINE HYDROCHLORIDE
     Indication: Schizophrenia
     Route: 065
  11. BIPERIDEN [Suspect]
     Active Substance: BIPERIDEN
     Indication: Schizophrenia
     Dosage: 2 MILLIGRAM, ONCE A DAY
     Route: 065
  12. CLOZAPINE [Suspect]
     Active Substance: CLOZAPINE
     Indication: Schizophrenia
     Route: 065
  13. CLOZAPINE [Suspect]
     Active Substance: CLOZAPINE
     Route: 065
  14. CLOZAPINE [Suspect]
     Active Substance: CLOZAPINE
     Route: 065
  15. CLOZAPINE [Suspect]
     Active Substance: CLOZAPINE
     Route: 065
  16. LEVOTHYROXINE [Suspect]
     Active Substance: LEVOTHYROXINE
     Indication: Schizophrenia
     Dosage: 75 MILLIGRAM, ONCE A DAY
     Route: 065
  17. LURASIDONE [Suspect]
     Active Substance: LURASIDONE
     Indication: Schizophrenia
     Route: 065
  18. VALPROIC ACID [Suspect]
     Active Substance: VALPROIC ACID
     Indication: Schizophrenia
     Route: 065
  19. VALPROIC ACID [Suspect]
     Active Substance: VALPROIC ACID
     Dosage: 1000 MILLIGRAM, ONCE A DAY
     Route: 065
  20. VALPROIC ACID [Suspect]
     Active Substance: VALPROIC ACID
     Dosage: 1500 MILLIGRAM, ONCE A DAY
     Route: 065
  21. ZUCLOPENTHIXOL [Suspect]
     Active Substance: ZUCLOPENTHIXOL
     Indication: Schizophrenia
     Route: 065

REACTIONS (19)
  - Sleep disorder [Unknown]
  - Psychomotor hyperactivity [Unknown]
  - Fear [Unknown]
  - Somnolence [Unknown]
  - Decreased appetite [Unknown]
  - Social avoidant behaviour [Unknown]
  - Irritability [Unknown]
  - Agitation [Unknown]
  - Anxiety [Unknown]
  - Insomnia [Unknown]
  - Blood creatine phosphokinase increased [Unknown]
  - Persecutory delusion [Unknown]
  - Depression [Unknown]
  - Disturbance in attention [Unknown]
  - Hallucination [Unknown]
  - Weight decreased [Unknown]
  - Delusion [Unknown]
  - Negative thoughts [Unknown]
  - Drug ineffective [Unknown]

NARRATIVE: CASE EVENT DATE: 20200101
